FAERS Safety Report 21946973 (Version 2)
Quarter: 2023Q1

REPORT INFORMATION
  Report Type: Spontaneous
  Country: US (occurrence: US)
  Receive Date: 20230202
  Receipt Date: 20230222
  Transmission Date: 20230418
  Serious: Yes (Death, Hospitalization, Other)
  Sender: FDA-Public Use
  Company Number: US-PFIZER INC-202300043089

PATIENT
  Age: 82 Year
  Sex: Male
  Weight: 68.948 kg

DRUGS (2)
  1. PAXLOVID [Interacting]
     Active Substance: NIRMATRELVIR\RITONAVIR
     Indication: COVID-19 treatment
     Dosage: UNK
  2. METOPROLOL [Interacting]
     Active Substance: METOPROLOL
     Dosage: 12.5 MG

REACTIONS (3)
  - Drug interaction [Fatal]
  - Cardiac arrest [Fatal]
  - Dyspnoea [Unknown]
